FAERS Safety Report 19371927 (Version 1)
Quarter: 2021Q2

REPORT INFORMATION
  Report Type: Spontaneous
  Country: CA (occurrence: CA)
  Receive Date: 20210604
  Receipt Date: 20210604
  Transmission Date: 20210717
  Serious: Yes (Other)
  Sender: FDA-Public Use
  Company Number: CA-TEVA-2021-CA-1917155

PATIENT
  Age: 78 Year
  Sex: Female

DRUGS (15)
  1. PRADAXA [Concomitant]
     Active Substance: DABIGATRAN ETEXILATE MESYLATE
  2. SINEQUAN [Concomitant]
     Active Substance: DOXEPIN HYDROCHLORIDE
  3. MAGNESIUM [Concomitant]
     Active Substance: MAGNESIUM
  4. METFORMIN [Concomitant]
     Active Substance: METFORMIN HYDROCHLORIDE
  5. SIMVASTATIN. [Concomitant]
     Active Substance: SIMVASTATIN
  6. METOPROLOL. [Concomitant]
     Active Substance: METOPROLOL
     Route: 065
  7. VITAMIN D [Concomitant]
     Active Substance: VITAMIN D NOS
  8. CENTRUM SELECT [Concomitant]
     Active Substance: VITAMINS
  9. PMS?CLONAZEPAM [Concomitant]
     Active Substance: CLONAZEPAM
  10. AURO?MIRTAZAPINE OD [Concomitant]
  11. VITAMIN B12 [Concomitant]
     Active Substance: CYANOCOBALAMIN
  12. VITAMIN C [Concomitant]
     Active Substance: ASCORBIC ACID
  13. AMIODARONE [Suspect]
     Active Substance: AMIODARONE
     Indication: ATRIAL FIBRILLATION
     Dosage: 800 MILLIGRAM DAILY;
     Route: 065
  14. QUETIAPINE. [Concomitant]
     Active Substance: QUETIAPINE
  15. ZOPICLONE [Concomitant]
     Active Substance: ZOPICLONE

REACTIONS (15)
  - Crying [Unknown]
  - Pulmonary mass [Unknown]
  - Delirium [Unknown]
  - Insomnia [Unknown]
  - Nightmare [Unknown]
  - Walking aid user [Unknown]
  - Dyspnoea [Unknown]
  - Eye pain [Unknown]
  - Fatigue [Unknown]
  - Vision blurred [Unknown]
  - Weight decreased [Unknown]
  - Dizziness [Unknown]
  - General physical health deterioration [Unknown]
  - Impaired quality of life [Unknown]
  - Lethargy [Unknown]
